FAERS Safety Report 6969506-5 (Version None)
Quarter: 2010Q3

REPORT INFORMATION
  Report Type: 
  Country: None (occurrence: None)
  Receive Date: 20100907
  Receipt Date: 20100907
  Transmission Date: 20110219
  Serious: Yes (Other)
  Sender: FDA-Public Use
  Company Number: None

PATIENT
  Age: 7 Year
  Sex: Male
  Weight: 28.7 kg

DRUGS (1)
  1. ADVAIR HFA [Suspect]
     Indication: ASTHMA

REACTIONS (4)
  - ASTHMA [None]
  - CONDITION AGGRAVATED [None]
  - DECREASED ACTIVITY [None]
  - OBSTRUCTIVE AIRWAYS DISORDER [None]
